FAERS Safety Report 17724781 (Version 1)
Quarter: 2020Q2

REPORT INFORMATION
  Report Type: Spontaneous
  Country: US (occurrence: US)
  Receive Date: 20200429
  Receipt Date: 20200429
  Transmission Date: 20200714
  Serious: No
  Sender: FDA-Public Use
  Company Number: None

PATIENT
  Age: 38 Year
  Sex: Male
  Weight: 87.3 kg

DRUGS (1)
  1. SUMATRIPTANE INJECTION [Suspect]
     Active Substance: SUMATRIPTAN SUCCINATE
     Indication: HEADACHE
     Dates: start: 20200427, end: 20200427

REACTIONS (7)
  - Mood altered [None]
  - Feeling abnormal [None]
  - Erectile dysfunction [None]
  - Decreased appetite [None]
  - Injection site pain [None]
  - Burning sensation [None]
  - Headache [None]

NARRATIVE: CASE EVENT DATE: 20200427
